FAERS Safety Report 12972665 (Version 2)
Quarter: 2016Q4

REPORT INFORMATION
  Report Type: Report from Study
  Country: US (occurrence: US)
  Receive Date: 20161124
  Receipt Date: 20161214
  Transmission Date: 20170207
  Serious: No
  Sender: FDA-Public Use
  Company Number: US-ASTRAZENECA-2016SF16756

PATIENT
  Sex: Female
  Weight: 79.4 kg

DRUGS (11)
  1. OMEGA 3 KRILL OIL [Concomitant]
     Route: 048
     Dates: start: 2015
  2. METFORMIN [Concomitant]
     Active Substance: METFORMIN HYDROCHLORIDE
     Indication: DIABETES MELLITUS
     Route: 048
  3. CRANBERRY PILL [Concomitant]
     Active Substance: CRANBERRY
     Dosage: 1, DAILY
     Route: 048
     Dates: start: 2015
  4. LOSARTAN. [Concomitant]
     Active Substance: LOSARTAN
     Indication: BLOOD PRESSURE ABNORMAL
     Route: 048
  5. CHROMIUM [Concomitant]
     Active Substance: CHROMIC CHLORIDE\CHROMIUM
     Indication: BLOOD GLUCOSE DECREASED
     Route: 048
     Dates: start: 2015
  6. ONGLYZA [Suspect]
     Active Substance: SAXAGLIPTIN HYDROCHLORIDE
     Indication: DIABETES MELLITUS
     Route: 048
     Dates: start: 2011
  7. AMLODIPINE [Concomitant]
     Active Substance: AMLODIPINE BESYLATE
     Indication: BLOOD PRESSURE ABNORMAL
     Route: 048
  8. VITAMIN B NOS [Concomitant]
     Active Substance: VITAMIN B
     Dosage: 1, DAILY
     Route: 048
     Dates: start: 2015
  9. FORXIGA [Suspect]
     Active Substance: DAPAGLIFLOZIN
     Indication: DIABETES MELLITUS
     Route: 048
     Dates: start: 2015
  10. SIMVASTIN [Concomitant]
     Active Substance: SIMVASTATIN
     Indication: BLOOD CHOLESTEROL ABNORMAL
     Route: 048
  11. CINNAMON. [Concomitant]
     Active Substance: CINNAMON
     Dosage: 2, DAILY
     Route: 048
     Dates: start: 2015

REACTIONS (3)
  - Diabetes mellitus inadequate control [Unknown]
  - Weight increased [Unknown]
  - Weight decreased [Unknown]
